FAERS Safety Report 14445611 (Version 1)
Quarter: 2018Q1

REPORT INFORMATION
  Report Type: Spontaneous
  Country: JP (occurrence: JP)
  Receive Date: 20180126
  Receipt Date: 20180126
  Transmission Date: 20180509
  Serious: Yes (Death, Other)
  Sender: FDA-Public Use
  Company Number: JP-HQ SPECIALTY-JP-2018INT000010

PATIENT

DRUGS (4)
  1. GIMERACIL [Suspect]
     Active Substance: GIMERACIL
     Indication: BLADDER CANCER
     Dosage: S-1 40?60 MG, BID SCHEDULED FOR 21 DAYS
     Route: 065
  2. OTERACIL [Suspect]
     Active Substance: OTERACIL
     Indication: BLADDER CANCER
     Dosage: S-1 40?60 MG, BID SCHEDULED FOR 21 DAYS
     Route: 065
  3. TEGAFUR [Suspect]
     Active Substance: TEGAFUR
     Indication: BLADDER CANCER
     Dosage: S-1 40?60 MG, BID SCHEDULED FOR 21 DAYS
     Route: 065
  4. CISPLATIN. [Suspect]
     Active Substance: CISPLATIN
     Indication: BLADDER CANCER
     Dosage: 60 MG/M2, ON DAY 8,EVERY 5 WEEKS
     Route: 065

REACTIONS (1)
  - Acute coronary syndrome [Fatal]
